FAERS Safety Report 21595358 (Version 1)
Quarter: 2022Q4

REPORT INFORMATION
  Report Type: Spontaneous
  Country: US (occurrence: None)
  Receive Date: 20221114
  Receipt Date: 20221114
  Transmission Date: 20230112
  Serious: Yes (Hospitalization)
  Sender: FDA-Public Use
  Company Number: None

PATIENT
  Age: 70 Year
  Sex: Female
  Weight: 98.16 kg

DRUGS (13)
  1. CAPECITABINE [Suspect]
     Active Substance: CAPECITABINE
     Indication: Breast cancer female
     Dosage: OTHER FREQUENCY : Q12HOURS;?
     Route: 048
     Dates: start: 20221022
  2. ASPIRIN [Concomitant]
  3. ADVIL [Concomitant]
     Active Substance: IBUPROFEN
  4. BENADRYL [Concomitant]
  5. CURAD HYDROCORTISONE [Concomitant]
  6. FLUTICASONE [Concomitant]
  7. VITAMIN B12 [Concomitant]
  8. DENOSUMAB [Concomitant]
  9. NORCO [Concomitant]
  10. VITAMIN D3 [Concomitant]
  11. NORCO [Concomitant]
     Active Substance: ACETAMINOPHEN\HYDROCODONE BITARTRATE
  12. ONDANSETRON [Concomitant]
  13. VENTOLIN [Concomitant]

REACTIONS (2)
  - Toe amputation [None]
  - Therapy interrupted [None]
